FAERS Safety Report 10724398 (Version 2)
Quarter: 2015Q3

REPORT INFORMATION
  Report Type: Spontaneous
  Country: US (occurrence: US)
  Receive Date: 20150120
  Receipt Date: 20150710
  Transmission Date: 20151125
  Serious: Yes (Hospitalization, Other)
  Sender: FDA-Public Use
  Company Number: US-BAYER-2015-004886

PATIENT
  Age: 32 Year
  Sex: Female

DRUGS (16)
  1. YAZ [Suspect]
     Active Substance: DROSPIRENONE\ETHINYL ESTRADIOL
     Indication: PREMENSTRUAL SYNDROME
  2. ALDACTONE [Concomitant]
     Active Substance: SPIRONOLACTONE
     Dosage: UNK
     Dates: start: 1994
  3. MINOCYCLINE [Concomitant]
     Active Substance: MINOCYCLINE\MINOCYCLINE HYDROCHLORIDE
     Dosage: UNK
     Dates: start: 1994
  4. BACTRIM [Concomitant]
     Active Substance: SULFAMETHOXAZOLE\TRIMETHOPRIM
  5. FLUOXETINE [Concomitant]
     Active Substance: FLUOXETINE\FLUOXETINE HYDROCHLORIDE
  6. FAMCICLOVIR. [Concomitant]
     Active Substance: FAMCICLOVIR
  7. YAZ [Suspect]
     Active Substance: DROSPIRENONE\ETHINYL ESTRADIOL
     Indication: CONTRACEPTION
     Dosage: UNK
     Dates: start: 20111214, end: 20111231
  8. TETRACYCLINE [Concomitant]
     Active Substance: TETRACYCLINE
     Dosage: UNK
     Dates: start: 1994
  9. CLONAZEPAM. [Concomitant]
     Active Substance: CLONAZEPAM
  10. PROZAC [Concomitant]
     Active Substance: FLUOXETINE HYDROCHLORIDE
  11. RETIN-A [Concomitant]
     Active Substance: TRETINOIN
     Indication: ACNE
     Dosage: UNK
     Dates: start: 1994
  12. ACIDOPHILUS [Concomitant]
     Active Substance: LACTOBACILLUS ACIDOPHILUS
  13. GINKO BILOBA [Concomitant]
     Active Substance: GINKGO
  14. YAZ [Suspect]
     Active Substance: DROSPIRENONE\ETHINYL ESTRADIOL
     Indication: ACNE
  15. CLEOCIN [Concomitant]
     Active Substance: CLINDAMYCIN PHOSPHATE
  16. ACYCLOVIR [ACICLOVIR SODIUM] [Concomitant]

REACTIONS (12)
  - Depression [None]
  - Amnesia [None]
  - Pain [None]
  - General physical health deterioration [None]
  - Gallbladder disorder [None]
  - Migraine [None]
  - Emotional distress [None]
  - Embolic stroke [None]
  - Speech disorder [None]
  - Anxiety [None]
  - Injury [None]
  - Anhedonia [None]

NARRATIVE: CASE EVENT DATE: 201112
